FAERS Safety Report 12726258 (Version 2)
Quarter: 2017Q1

REPORT INFORMATION
  Report Type: Spontaneous
  Country: PE (occurrence: PE)
  Receive Date: 20160908
  Receipt Date: 20170120
  Transmission Date: 20170428
  Serious: No
  Sender: FDA-Public Use
  Company Number: PE-PFIZER INC-2016416862

PATIENT
  Age: 80 Year
  Sex: Female

DRUGS (3)
  1. ZYPREXA [Concomitant]
     Active Substance: OLANZAPINE
     Dosage: UNK
     Dates: start: 20170103
  2. ZOLOFT [Suspect]
     Active Substance: SERTRALINE HYDROCHLORIDE
     Indication: DISORIENTATION
     Dosage: UNK, 1X/DAY
  3. ZOLOFT [Suspect]
     Active Substance: SERTRALINE HYDROCHLORIDE
     Indication: SENILE DEMENTIA
     Dosage: UNK, 1X/DAY (1/2 TABLET)

REACTIONS (4)
  - Depression [Recovering/Resolving]
  - Crying [Recovering/Resolving]
  - Product use issue [Unknown]
  - Emotional distress [Recovering/Resolving]
